FAERS Safety Report 10697652 (Version 4)
Quarter: 2016Q1

REPORT INFORMATION
  Report Type: Spontaneous
  Country: US (occurrence: US)
  Receive Date: 20150108
  Receipt Date: 20160321
  Transmission Date: 20160525
  Serious: Yes (Other)
  Sender: FDA-Public Use
  Company Number: US-PFIZER INC-2015006411

PATIENT
  Age: 66 Year
  Sex: Female

DRUGS (12)
  1. CELEBREX [Concomitant]
     Active Substance: CELECOXIB
     Dosage: 200 MG, DAILY
     Route: 048
  2. LEVOTHYROXINE. [Concomitant]
     Active Substance: LEVOTHYROXINE
     Dosage: 88 UG, DAILY
     Route: 048
  3. PAXIL [Concomitant]
     Active Substance: PAROXETINE HYDROCHLORIDE
     Dosage: 20 MG, 1X/DAY(EVERY EVENING)
     Route: 048
  4. AMBIEN [Concomitant]
     Active Substance: ZOLPIDEM TARTRATE
     Dosage: 5 MG, NIGHTLY AS NEEDED
     Route: 048
  5. ROBAXIN [Concomitant]
     Active Substance: METHOCARBAMOL
     Indication: MUSCLE SPASMS
     Dosage: 500 MG, 3X/DAY(THREE TIMES A DAY AS NEEDED FOR MUSCLES SPASMS)
     Route: 048
  6. PHENTERMINE. [Concomitant]
     Active Substance: PHENTERMINE
     Dosage: 30 MG, 1X/DAY(EVERY MORNING)
     Route: 048
  7. LYRICA [Suspect]
     Active Substance: PREGABALIN
     Indication: FIBROMYALGIA
     Dosage: 225 MG, 2X/DAY
     Route: 048
     Dates: start: 2007
  8. DETROL LA [Concomitant]
     Active Substance: TOLTERODINE TARTRATE
     Dosage: 4 MG, DAILY
     Route: 048
  9. ULTRAM [Concomitant]
     Active Substance: TRAMADOL HYDROCHLORIDE
     Indication: PAIN
     Dosage: 50 MG, EVERY 6 HOURS AS NEEDED
     Route: 048
  10. ELAVIL [Concomitant]
     Active Substance: AMITRIPTYLINE HYDROCHLORIDE
     Dosage: 100 MG, 1X/DAY(NIGHTLY)
     Route: 048
  11. VITAMIN D3 [Concomitant]
     Active Substance: CHOLECALCIFEROL
     Dosage: 5000 IU, DAILY
     Route: 048
  12. LYRICA [Suspect]
     Active Substance: PREGABALIN
     Dosage: 250 MG, 2X/DAY(EVERY 12 (TWELVE) HOURS ADD 25 MG TO HIS DOSE BID FOR TOTAL 250 BID)
     Route: 048
     Dates: start: 20160121

REACTIONS (4)
  - Condition aggravated [Recovering/Resolving]
  - Rotator cuff syndrome [Unknown]
  - Pain [Recovering/Resolving]
  - Drug ineffective [Unknown]
